FAERS Safety Report 25141209 (Version 1)
Quarter: 2025Q1

REPORT INFORMATION
  Report Type: Spontaneous
  Country: IN (occurrence: IN)
  Receive Date: 20250331
  Receipt Date: 20250331
  Transmission Date: 20250409
  Serious: Yes (Death)
  Sender: PFIZER
  Company Number: IN-PFIZER INC-PV202400075694

PATIENT
  Age: 46 Year
  Sex: Female
  Weight: 62 kg

DRUGS (14)
  1. LORLATINIB [Suspect]
     Active Substance: LORLATINIB
     Indication: Adenocarcinoma metastatic
     Dosage: 100 MG, 1X/DAY (OD 3 MONTHS)
     Route: 048
     Dates: start: 20240318, end: 20250313
  2. LORLATINIB [Suspect]
     Active Substance: LORLATINIB
     Indication: Lung adenocarcinoma
     Dosage: 75 MG, 1X/DAY (OD)
     Route: 048
     Dates: start: 2024
  3. LORLATINIB [Suspect]
     Active Substance: LORLATINIB
     Dosage: 100 MG, 1X/DAY
     Route: 048
     Dates: start: 202412
  4. BRIV [Concomitant]
  5. SOMPRAZ [OMEPRAZOLE] [Concomitant]
  6. ROSUVASTATIN CALCIUM [Concomitant]
     Active Substance: ROSUVASTATIN CALCIUM
  7. DAPANOVA [Concomitant]
  8. LYRICA [Concomitant]
     Active Substance: PREGABALIN
  9. METHYLPREDNISOLONE [Concomitant]
     Active Substance: METHYLPREDNISOLONE
     Route: 042
  10. METHYLPREDNISOLONE [Concomitant]
     Active Substance: METHYLPREDNISOLONE
     Route: 042
  11. TRAMADOL [Concomitant]
     Active Substance: TRAMADOL
     Route: 042
  12. TORSEMIDE [Concomitant]
     Active Substance: TORSEMIDE
  13. TORSEMIDE [Concomitant]
     Active Substance: TORSEMIDE
  14. XYSTER [Concomitant]

REACTIONS (12)
  - Death [Fatal]
  - Swelling face [Unknown]
  - Ecchymosis [Unknown]
  - Weight decreased [Unknown]
  - Pain [Unknown]
  - Tenderness [Unknown]
  - Rash [Unknown]
  - Blood triglycerides increased [Not Recovered/Not Resolved]
  - Blood cholesterol increased [Not Recovered/Not Resolved]
  - Blood glucose increased [Unknown]
  - Weight increased [Unknown]
  - Oedema [Unknown]

NARRATIVE: CASE EVENT DATE: 20240101
